FAERS Safety Report 9525009 (Version 1)
Quarter: 2013Q1

REPORT INFORMATION
  Report Type: Spontaneous
  Country: US (occurrence: None)
  Receive Date: 20130313
  Receipt Date: 20130313
  Transmission Date: 20140127
  Serious: No
  Sender: FDA-Public Use
  Company Number: 1000037870

PATIENT
  Age: 60 Year
  Sex: Female

DRUGS (7)
  1. SAVELLA (MILNACIPRAN HYDROCHLORIDE) (12.5 MILLIGRAM, TABLETS) [Suspect]
     Indication: FIBROMYALGIA
     Dosage: 12.5 MG (12.5 MG, 1 IN 1 D), ORAL
     Route: 048
     Dates: start: 201205, end: 2012
  2. TRAMADOL (TRAMADOL) [Suspect]
     Indication: FIBROMYALGIA
     Dosage: 150 MG (50 MG, 3 IN 1 D)
     Dates: start: 201208
  3. DIOVAN (VALSARTAN) [Concomitant]
  4. LEVOTHYROXINE (LEVOTHYROXINE SODIUM) [Concomitant]
  5. ATORVASTATIN [Concomitant]
  6. FISH OIL [Concomitant]
  7. CALCIUM [Concomitant]

REACTIONS (6)
  - Palpitations [None]
  - Dizziness [None]
  - Hyperhidrosis [None]
  - Feeling jittery [None]
  - Insomnia [None]
  - Aspartate aminotransferase decreased [None]
